FAERS Safety Report 24955009 (Version 1)
Quarter: 2025Q1

REPORT INFORMATION
  Report Type: Spontaneous
  Country: NL (occurrence: NL)
  Receive Date: 20250211
  Receipt Date: 20250211
  Transmission Date: 20250409
  Serious: Yes (Death, Other)
  Sender: ACCORD
  Company Number: None

PATIENT
  Age: 51 Year
  Sex: Female
  Weight: 65 kg

DRUGS (1)
  1. ESCITALOPRAM [Suspect]
     Active Substance: ESCITALOPRAM OXALATE
     Indication: Depression
     Dosage: 1 X PER DAY 1 PIECE
     Dates: start: 20230919

REACTIONS (5)
  - Psychotic disorder [Fatal]
  - Euphoric mood [Recovered/Resolved]
  - Hallucination [Unknown]
  - Panic attack [Unknown]
  - Completed suicide [Fatal]
